FAERS Safety Report 18478065 (Version 3)
Quarter: 2023Q1

REPORT INFORMATION
  Report Type: Report from Study
  Country: CA (occurrence: None)
  Receive Date: 20201108
  Receipt Date: 20230309
  Transmission Date: 20230418
  Serious: Yes (Life-Threatening, Hospitalization)
  Sender: FDA-Public Use
  Company Number: CA-ROCHE-2707315

PATIENT
  Age: 69 Year

DRUGS (6)
  1. VEMURAFENIB [Suspect]
     Active Substance: VEMURAFENIB
     Indication: Non-Hodgkin^s lymphoma
     Route: 048
     Dates: start: 20200922
  2. VEMURAFENIB [Suspect]
     Active Substance: VEMURAFENIB
     Indication: Plasma cell myeloma
  3. VEMURAFENIB [Suspect]
     Active Substance: VEMURAFENIB
     Indication: Neoplasm
  4. COBIMETINIB [Suspect]
     Active Substance: COBIMETINIB
     Indication: Non-Hodgkin^s lymphoma
     Dosage: 60 MG ORALLY ONCE DAILY FOR 21 DAYS, FOLLOWED BY 7 DAYS OF REST
     Route: 048
     Dates: start: 20200922
  5. COBIMETINIB [Suspect]
     Active Substance: COBIMETINIB
     Indication: Plasma cell myeloma
  6. COBIMETINIB [Suspect]
     Active Substance: COBIMETINIB
     Indication: Neoplasm

REACTIONS (4)
  - Dyspnoea [Unknown]
  - Cardiac failure [Unknown]
  - Hepatotoxicity [Unknown]
  - Cardiac failure [Unknown]

NARRATIVE: CASE EVENT DATE: 20200928
